FAERS Safety Report 19583278 (Version 1)
Quarter: 2021Q3

REPORT INFORMATION
  Report Type: Spontaneous
  Country: US (occurrence: US)
  Receive Date: 20210720
  Receipt Date: 20210720
  Transmission Date: 20211014
  Serious: Yes (Hospitalization, Other)
  Sender: FDA-Public Use
  Company Number: US-BAYER-2021-173416

PATIENT
  Age: 59 Year
  Sex: Male

DRUGS (2)
  1. CIPRO [Suspect]
     Active Substance: CIPROFLOXACIN HYDROCHLORIDE
     Dosage: UNK
     Dates: start: 20210105, end: 20210107
  2. ONE A DAY MEN^S 50+ ADVANTAGE [Suspect]
     Active Substance: MINERALS\VITAMINS
     Dosage: UNK
     Dates: start: 20201225

REACTIONS (13)
  - Flushing [None]
  - Vomiting [None]
  - Chromaturia [None]
  - Hepatitis acute [Recovered/Resolved]
  - Insomnia [None]
  - Loss of personal independence in daily activities [None]
  - Urinary tract infection [None]
  - Impaired work ability [None]
  - Pruritus [None]
  - Pain [None]
  - Chromaturia [None]
  - Drug hypersensitivity [None]
  - Emotional distress [None]

NARRATIVE: CASE EVENT DATE: 202012
